FAERS Safety Report 20017753 (Version 1)
Quarter: 2021Q4

REPORT INFORMATION
  Report Type: Spontaneous
  Country: None (occurrence: US)
  Receive Date: 20211031
  Receipt Date: 20211031
  Transmission Date: 20220303
  Serious: Yes (Other)
  Sender: FDA-Public Use
  Company Number: US-Canton Laboratories, LLC-2121263

PATIENT
  Age: 84 Year
  Sex: Male

DRUGS (1)
  1. NAPROSYN [Suspect]
     Active Substance: NAPROXEN
     Indication: Lumbar radiculopathy
     Route: 065

REACTIONS (1)
  - Eosinophilic pneumonia [Recovering/Resolving]
